FAERS Safety Report 7497133-2 (Version None)
Quarter: 2011Q2

REPORT INFORMATION
  Report Type: 
  Country: None (occurrence: None)
  Receive Date: 20110523
  Receipt Date: 20110517
  Transmission Date: 20111010
  Serious: Yes (Other)
  Sender: FDA-Public Use
  Company Number: US-ABBOTT-11P-163-0727046-00

PATIENT
  Sex: Female
  Weight: 89.892 kg

DRUGS (2)
  1. HUMIRA [Suspect]
     Dates: start: 20110401, end: 20110511
  2. HUMIRA [Suspect]
     Indication: PUSTULAR PSORIASIS
     Dates: start: 20100901, end: 20101101

REACTIONS (5)
  - OEDEMA [None]
  - ANGIOEDEMA [None]
  - HYPERSENSITIVITY [None]
  - CELLULITIS [None]
  - SKIN PLAQUE [None]
